FAERS Safety Report 5117400-7 (Version None)
Quarter: 2006Q3

REPORT INFORMATION
  Report Type: 
  Country: None (occurrence: None)
  Receive Date: 20060926
  Receipt Date: 20060919
  Transmission Date: 20061208
  Serious: Yes (Hospitalization, Other)
  Sender: FDA-Public Use
  Company Number: EM2006-0523

PATIENT
  Sex: Female

DRUGS (1)
  1. PROLEUKIN [Suspect]
     Indication: METASTATIC MALIGNANT MELANOMA

REACTIONS (5)
  - ALVEOLITIS ALLERGIC [None]
  - DRUG HYPERSENSITIVITY [None]
  - NAUSEA [None]
  - PANCYTOPENIA [None]
  - VOMITING [None]
